FAERS Safety Report 8995905 (Version 1)
Quarter: 2013Q1

REPORT INFORMATION
  Report Type: Report from Study
  Country: NO (occurrence: NO)
  Receive Date: 20130103
  Receipt Date: 20130103
  Transmission Date: 20140127
  Serious: Yes (Hospitalization)
  Sender: FDA-Public Use
  Company Number: NO-PFIZER INC-2012332067

PATIENT
  Age: 48 Year
  Sex: Female
  Weight: 89 kg

DRUGS (12)
  1. EPIRUBICIN HCL [Suspect]
     Indication: BREAST CANCER
     Dosage: ON DAY ONE/21 DAY
     Route: 065
     Dates: start: 20100226
  2. EPIRUBICIN HCL [Suspect]
     Dosage: 200 MG, UNK
     Route: 065
     Dates: start: 20100430, end: 20100430
  3. FLUOROURACIL [Suspect]
     Indication: PRODUCT USED FOR UNKNOWN INDICATION
     Dosage: ON DAY ONE/21 DAY
     Route: 065
     Dates: start: 20100226
  4. FLUOROURACIL [Suspect]
     Dosage: 1200 MG, UNK
     Route: 065
     Dates: start: 20100430, end: 20100430
  5. BEVACIZUMAB [Suspect]
     Indication: BREAST CANCER
     Dosage: 1335 MG, DAY 1 OF EVERY 21 DAYS
     Route: 042
     Dates: start: 20100226
  6. CYCLOPHOSPHAMIDE [Suspect]
     Indication: BREAST CANCER
     Dosage: ON DAY ONE/21 DAY
     Route: 065
     Dates: start: 20100226
  7. CYCLOPHOSPHAMIDE [Suspect]
     Dosage: 1200 MG, UNK
     Route: 065
     Dates: start: 20100430, end: 20100430
  8. TAXOTERE [Suspect]
     Indication: BREAST CANCER
     Dosage: DAILY DOSE- 200 (UNITS UNSPECIFIED)
     Route: 065
     Dates: start: 20100521, end: 20100521
  9. FLUCONAZOLE [Concomitant]
     Dates: start: 20100426, end: 20100430
  10. ESCITALOPRAM [Concomitant]
     Dates: start: 20030615
  11. ZOFRAN [Concomitant]
     Dates: start: 20100319
  12. MEDROL [Concomitant]
     Dates: start: 20100319

REACTIONS (1)
  - Febrile neutropenia [Recovered/Resolved]
